FAERS Safety Report 16785636 (Version 3)
Quarter: 2019Q3

REPORT INFORMATION
  Report Type: Spontaneous
  Country: US (occurrence: US)
  Receive Date: 20190909
  Receipt Date: 20190927
  Transmission Date: 20191005
  Serious: No
  Sender: FDA-Public Use
  Company Number: US-PFIZER INC-2019374902

PATIENT
  Age: 66 Year
  Sex: Female
  Weight: 91.17 kg

DRUGS (2)
  1. SKELAXIN [Suspect]
     Active Substance: METAXALONE
     Indication: PAIN
     Dosage: 800 MG, 2X/DAY
     Route: 048
  2. SKELAXIN [Suspect]
     Active Substance: METAXALONE
     Indication: MUSCLE DISCOMFORT

REACTIONS (4)
  - Dyskinesia [Not Recovered/Not Resolved]
  - Drug withdrawal syndrome [Not Recovered/Not Resolved]
  - Tremor [Not Recovered/Not Resolved]
  - Off label use [Unknown]

NARRATIVE: CASE EVENT DATE: 20190902
